FAERS Safety Report 7124632 (Version 3)
Quarter: 2015Q4

REPORT INFORMATION
  Report Type: Spontaneous
  Country: ZA (occurrence: ZA)
  Receive Date: 20090922
  Receipt Date: 20151201
  Transmission Date: 20160305
  Serious: Yes (Death, Other)
  Sender: FDA-Public Use
  Company Number: ZA-BRISTOL-MYERS SQUIBB COMPANY-14785646

PATIENT
  Age: 26 Year
  Sex: Female

DRUGS (3)
  1. STAVUDINE. [Concomitant]
     Active Substance: STAVUDINE
     Indication: ANTIRETROVIRAL THERAPY
     Dosage: UNK
     Route: 065
     Dates: start: 20051122
  2. LAMIVUDINE. [Concomitant]
     Active Substance: LAMIVUDINE
     Indication: ANTIRETROVIRAL THERAPY
     Dosage: UNK
     Route: 065
     Dates: start: 20051122
  3. EFAVIRENZ [Suspect]
     Active Substance: EFAVIRENZ
     Indication: ANTIRETROVIRAL THERAPY
     Dosage: UNK
     Route: 048
     Dates: start: 20051122

REACTIONS (2)
  - Death [Fatal]
  - Maternal exposure during pregnancy [Unknown]

NARRATIVE: CASE EVENT DATE: 200512
